FAERS Safety Report 7803722-5 (Version None)
Quarter: 2011Q4

REPORT INFORMATION
  Report Type: 
  Country: None (occurrence: None)
  Receive Date: 20111010
  Receipt Date: 20111006
  Transmission Date: 20120403
  Serious: Yes (Hospitalization)
  Sender: FDA-Public Use
  Company Number: US-TEVA-302450USA

PATIENT
  Age: 71 Year
  Sex: Male
  Weight: 55.388 kg

DRUGS (19)
  1. OXALIPLATIN [Concomitant]
     Indication: COLORECTAL CANCER METASTATIC
     Dosage: 10.3571 MILLIGRAM;
     Route: 042
     Dates: start: 20070905, end: 20071112
  2. TOCOPHEROL CONCENTRATE CAP [Concomitant]
     Dates: start: 20020101
  3. OXYCODONE HCL [Concomitant]
     Dates: start: 20060101
  4. HYDROCODONE BITARTRATE [Concomitant]
     Dates: start: 20070906
  5. CLONAZEPAM [Concomitant]
     Dates: start: 20070401
  6. LEUCOVORIN CALCIUM [Concomitant]
     Indication: COLORECTAL CANCER METASTATIC
     Dosage: 48.5714 MILLIGRAM;
     Route: 042
     Dates: start: 20070905, end: 20071112
  7. HYDROXYZINE HYDROCHLORIDE [Concomitant]
     Dates: start: 20060101
  8. BUDESONIDE [Concomitant]
     Dates: start: 20020101
  9. VITACAL                            /01535001/ [Concomitant]
     Dates: start: 20020101
  10. FLUOROURACIL [Suspect]
     Indication: COLORECTAL CANCER METASTATIC
     Dosage: 227.1429 MILLIGRAM; CONTINUOUS INFUSION
     Route: 041
     Dates: start: 20070905, end: 20071112
  11. INVESTIGATIONAL DRUG (AXITINIB) [Suspect]
     Indication: COLORECTAL CANCER METASTATIC
     Dosage: 10 MILLIGRAM;
     Route: 048
     Dates: start: 20070908, end: 20071112
  12. PROCHLORPERAZINE EDISYLATE [Concomitant]
     Dates: start: 20070901
  13. POTASSIUM [Concomitant]
     Dates: start: 20060801
  14. FLUOROURACIL [Suspect]
     Dosage: 48.5714 MILLIGRAM;
     Route: 040
     Dates: start: 20070905, end: 20071112
  15. SERETIDE                           /01420901/ [Concomitant]
     Dates: start: 20050101
  16. FAMOTIDINE [Concomitant]
     Dates: start: 20070828
  17. RETINOL [Concomitant]
     Dates: start: 20020101
  18. CYANOCOBALAMIN [Concomitant]
     Dates: start: 20020101
  19. LOPERAMIDE HCL [Concomitant]
     Dates: start: 20070925

REACTIONS (1)
  - HEMIPARESIS [None]
